FAERS Safety Report 5916562-9 (Version None)
Quarter: 2008Q4

REPORT INFORMATION
  Report Type: 
  Country: None (occurrence: None)
  Receive Date: 20081013
  Receipt Date: 20081008
  Transmission Date: 20090506
  Serious: Yes (Other)
  Sender: FDA-Public Use
  Company Number: JP-BRISTOL-MYERS SQUIBB COMPANY-14364855

PATIENT
  Age: 51 Year
  Sex: Female

DRUGS (2)
  1. FUNGIZONE [Suspect]
     Indication: MENINGITIS CRYPTOCOCCAL
     Route: 041
  2. ANCOTIL [Concomitant]
     Route: 048

REACTIONS (2)
  - HYDROCEPHALUS [None]
  - RENAL IMPAIRMENT [None]
